FAERS Safety Report 7636527-9 (Version None)
Quarter: 2011Q3

REPORT INFORMATION
  Report Type: 
  Country: None (occurrence: None)
  Receive Date: 20110726
  Receipt Date: 20110719
  Transmission Date: 20111222
  Serious: Yes (Death)
  Sender: FDA-Public Use
  Company Number: CA-MERCK-1107USA02410

PATIENT
  Sex: Female

DRUGS (5)
  1. ZOLEDRONOC ACID [Suspect]
     Route: 042
  2. CORTICOSTEROIDS (UNSPECIFIED) [Concomitant]
     Route: 065
  3. INSULIN [Concomitant]
     Route: 065
  4. HEPARIN [Suspect]
     Route: 065
  5. INVANZ [Suspect]
     Route: 030

REACTIONS (7)
  - COLON CANCER METASTATIC [None]
  - LEUKOPENIA [None]
  - PULMONARY EMBOLISM [None]
  - ANASTOMOTIC LEAK [None]
  - HYPERTHERMIA [None]
  - NEUTROPENIA [None]
  - THROMBOCYTOPENIA [None]
